FAERS Safety Report 13152975 (Version 1)
Quarter: 2017Q1

REPORT INFORMATION
  Report Type: Report from Study
  Country: US (occurrence: US)
  Receive Date: 20170126
  Receipt Date: 20170126
  Transmission Date: 20170428
  Serious: Yes (Hospitalization, Other)
  Sender: FDA-Public Use
  Company Number: US-ENDO PHARMACEUTICALS INC-2017-000236

PATIENT
  Age: 49 Year
  Sex: Female
  Weight: 58 kg

DRUGS (5)
  1. LINSITINIB [Suspect]
     Active Substance: LINSITINIB
     Dosage: 150 MG TWICE DAILY EVERY 28 DAYS
     Route: 048
     Dates: start: 20150506
  2. HYDROMORPHONE [Concomitant]
     Active Substance: HYDROMORPHONE
     Indication: PRODUCT USED FOR UNKNOWN INDICATION
     Dosage: UNK, UNKNOWN
     Route: 065
  3. HYDROCODONE/ACETAMINOPHEN 5MG/325MG [Suspect]
     Active Substance: ACETAMINOPHEN\HYDROCODONE
     Indication: PAIN MANAGEMENT
     Dosage: UNK UNK, UNKNOWN
     Route: 048
  4. LINSITINIB [Suspect]
     Active Substance: LINSITINIB
     Indication: GASTROINTESTINAL STROMAL TUMOUR
     Dosage: 150 MG TWICE DAILY EVERY 28 DAYS
     Route: 048
     Dates: start: 20130323, end: 20150408
  5. FLUDEOXYGLUCOSE (18F) [Suspect]
     Active Substance: FLUDEOXYGLUCOSE
     Indication: GASTROINTESTINAL STROMAL TUMOUR
     Dosage: 10-20 MCI, BASELINE AND WEEK 8
     Route: 042
     Dates: end: 20130516

REACTIONS (2)
  - Pancreatitis [Unknown]
  - Abdominal pain [Recovered/Resolved]

NARRATIVE: CASE EVENT DATE: 20150323
